FAERS Safety Report 9204192 (Version 1)
Quarter: 2013Q2

REPORT INFORMATION
  Report Type: Report from Study
  Country: FR (occurrence: FR)
  Receive Date: 20130402
  Receipt Date: 20130402
  Transmission Date: 20140414
  Serious: Yes (Death, Hospitalization)
  Sender: FDA-Public Use
  Company Number: FR-PFIZER INC-2013099859

PATIENT
  Age: 68 Year
  Sex: 0
  Weight: 64 kg

DRUGS (1)
  1. TORISEL [Suspect]
     Dosage: 75 MG, WEEKLY
     Dates: start: 20100603, end: 20100610

REACTIONS (2)
  - Septic shock [Fatal]
  - Pseudomonas infection [Fatal]
